FAERS Safety Report 8611794 (Version 3)
Quarter: 2014Q1

REPORT INFORMATION
  Report Type: Spontaneous
  Country: US (occurrence: US)
  Receive Date: 20120613
  Receipt Date: 20140311
  Transmission Date: 20141002
  Serious: No
  Sender: FDA-Public Use
  Company Number: US-ASTRAZENECA-2011SE43161

PATIENT
  Age: 65 Year
  Sex: Female

DRUGS (3)
  1. RHINOCORT AQUA [Suspect]
     Dosage: TWO SPARYS IN EACH NOSTRIL PER DAY
     Route: 045
  2. NEXIUM [Suspect]
     Route: 048
  3. PRILOSEC [Suspect]
     Route: 048

REACTIONS (11)
  - Allergic sinusitis [Unknown]
  - Ear congestion [Unknown]
  - Headache [Unknown]
  - Nasal congestion [Unknown]
  - Increased upper airway secretion [Unknown]
  - Headache [Unknown]
  - Dizziness [Unknown]
  - Cough [Unknown]
  - Drug hypersensitivity [Unknown]
  - Incorrect product storage [Unknown]
  - Stress [Unknown]
